FAERS Safety Report 9629786 (Version 1)
Quarter: 2013Q4

REPORT INFORMATION
  Report Type: Spontaneous
  Country: US (occurrence: US)
  Receive Date: 20131017
  Receipt Date: 20131017
  Transmission Date: 20140711
  Serious: Yes (Hospitalization)
  Sender: FDA-Public Use
  Company Number: US-PFIZER INC-2013295210

PATIENT
  Age: 47 Year
  Sex: Male

DRUGS (3)
  1. PRISTIQ [Suspect]
     Dosage: 50 MG, DAILY
     Route: 048
  2. LEVOTHYROXINE [Concomitant]
     Dosage: UNK
  3. FLOMAX [Concomitant]
     Dosage: UNK

REACTIONS (1)
  - Gun shot wound [Unknown]
